FAERS Safety Report 7259054-X (Version None)
Quarter: 2011Q1

REPORT INFORMATION
  Report Type: 
  Country: None (occurrence: None)
  Receive Date: 20110129
  Receipt Date: 20100818
  Transmission Date: 20110831
  Serious: Yes (Hospitalization)
  Sender: FDA-Public Use
  Company Number: US-ABBOTT-10P-163-0663319-00

PATIENT
  Sex: Male
  Weight: 84.898 kg

DRUGS (6)
  1. DEXAMETHASONE [Concomitant]
     Indication: PRODUCT USED FOR UNKNOWN INDICATION
     Dates: start: 20100604
  2. HUMIRA [Suspect]
     Indication: PSORIATIC ARTHROPATHY
  3. HUMIRA [Suspect]
     Indication: PSORIASIS
     Dates: start: 20100401, end: 20100513
  4. CLOBETAZOL [Concomitant]
     Indication: PSORIASIS
  5. PREDNISONE [Concomitant]
     Indication: PSORIASIS
  6. PREDNISONE [Concomitant]
     Indication: PSORIATIC ARTHROPATHY

REACTIONS (1)
  - CELLULITIS [None]
